FAERS Safety Report 23140732 (Version 1)
Quarter: 2023Q4

REPORT INFORMATION
  Report Type: Spontaneous
  Country: US (occurrence: US)
  Receive Date: 20231103
  Receipt Date: 20231103
  Transmission Date: 20240109
  Serious: No
  Sender: FDA-Public Use
  Company Number: US-TEVA-2023-US-2940680

PATIENT
  Age: 84 Year
  Sex: Female

DRUGS (1)
  1. BUPRENORPHINE [Suspect]
     Active Substance: BUPRENORPHINE
     Indication: Product used for unknown indication
     Dosage: STRENGTH;20 MCG/HR, 1 DOSAGE FROM WEEKLY,
     Route: 062

REACTIONS (3)
  - Application site rash [Unknown]
  - Application site pruritus [Unknown]
  - Application site discomfort [Unknown]
